FAERS Safety Report 14168698 (Version 3)
Quarter: 2018Q1

REPORT INFORMATION
  Report Type: Report from Study
  Country: US (occurrence: US)
  Receive Date: 20171107
  Receipt Date: 20180215
  Transmission Date: 20180508
  Serious: No
  Sender: FDA-Public Use
  Company Number: PHEH2017US036061

PATIENT
  Sex: Female
  Weight: 99.79 kg

DRUGS (1)
  1. COSENTYX [Suspect]
     Active Substance: SECUKINUMAB
     Indication: PSORIATIC ARTHROPATHY
     Dosage: 150 MG, EVERY QMO (4 WEEKS)
     Route: 058

REACTIONS (4)
  - Constipation [Unknown]
  - Inappropriate schedule of drug administration [Unknown]
  - Alopecia [Recovering/Resolving]
  - Diarrhoea [Unknown]
